FAERS Safety Report 23455466 (Version 1)
Quarter: 2024Q1

REPORT INFORMATION
  Report Type: Spontaneous
  Country: US (occurrence: US)
  Receive Date: 20240130
  Receipt Date: 20240130
  Transmission Date: 20240410
  Serious: Yes (Hospitalization, Other)
  Sender: FDA-Public Use
  Company Number: US-Y-MABS THERAPEUTICS, INC.-SPO2021-US-000476

PATIENT

DRUGS (13)
  1. DANYELZA [Suspect]
     Active Substance: NAXITAMAB-GQGK
     Indication: Neuroblastoma
     Dosage: CYCLE 1, DOSE 1
     Route: 042
     Dates: start: 20210816, end: 20210816
  2. HYDROCORTISONE [Concomitant]
     Active Substance: HYDROCORTISONE
     Indication: Premedication
  3. BENADRYL [Concomitant]
     Active Substance: DIPHENHYDRAMINE HYDROCHLORIDE
     Indication: Premedication
  4. TYLENOL [Concomitant]
     Active Substance: ACETAMINOPHEN
     Indication: Premedication
  5. MORPHINE [Concomitant]
     Active Substance: MORPHINE
     Indication: Premedication
  6. TYLENOL [Concomitant]
     Active Substance: ACETAMINOPHEN
     Indication: Pain
     Dosage: 7.5 MILLILITER, Q4H
  7. ALBUTEROL SULFATE [Concomitant]
     Active Substance: ALBUTEROL SULFATE
     Indication: Bronchospasm
     Dosage: 3 MILLILITER, Q4H
  8. DIPHENHYDRAMINE HYDROCHLORIDE [Concomitant]
     Active Substance: DIPHENHYDRAMINE HYDROCHLORIDE
     Indication: Nausea
     Dosage: 5 MILLILITER, Q6H
  9. DIPHENHYDRAMINE HYDROCHLORIDE [Concomitant]
     Active Substance: DIPHENHYDRAMINE HYDROCHLORIDE
     Indication: Vomiting
  10. FLOVENT [Concomitant]
     Active Substance: FLUTICASONE PROPIONATE
     Indication: Asthma
     Dosage: 1 PUFF BID
  11. LORAZEPAM [Concomitant]
     Active Substance: LORAZEPAM
     Indication: Nausea
     Dosage: 0.2 MILLILITER, Q6H
  12. LORAZEPAM [Concomitant]
     Active Substance: LORAZEPAM
     Indication: Vomiting
  13. MIRALAX [Concomitant]
     Active Substance: POLYETHYLENE GLYCOL 3350
     Indication: Constipation
     Dosage: 8.5 GRAM, QD
     Route: 048

REACTIONS (3)
  - Neuropathy peripheral [Recovered/Resolved]
  - Hypotension [Unknown]
  - Feeling hot [Unknown]

NARRATIVE: CASE EVENT DATE: 20210816
